FAERS Safety Report 11115364 (Version 1)
Quarter: 2015Q2

REPORT INFORMATION
  Report Type: Report from Study
  Country: US (occurrence: US)
  Receive Date: 20150515
  Receipt Date: 20150515
  Transmission Date: 20150821
  Serious: Yes (Other)
  Sender: FDA-Public Use
  Company Number: US-ROCHE-1575741

PATIENT
  Sex: Female
  Weight: 64.92 kg

DRUGS (4)
  1. HERCEPTIN [Suspect]
     Active Substance: TRASTUZUMAB
     Indication: BREAST CANCER METASTATIC
     Route: 042
     Dates: start: 20140523
  2. TAXOTERE [Concomitant]
     Active Substance: DOCETAXEL
  3. TRASTUZUMAB EMTANSINE [Suspect]
     Active Substance: ADO-TRASTUZUMAB EMTANSINE
     Indication: BREAST CANCER
     Route: 042
  4. PERJETA [Suspect]
     Active Substance: PERTUZUMAB
     Indication: PRODUCT USED FOR UNKNOWN INDICATION
     Route: 065

REACTIONS (9)
  - Tumour pain [Not Recovered/Not Resolved]
  - Salivary hypersecretion [Unknown]
  - Left ventricular dysfunction [Not Recovered/Not Resolved]
  - Unevaluable event [Unknown]
  - Heart valve incompetence [Not Recovered/Not Resolved]
  - Weight increased [Unknown]
  - Nausea [Not Recovered/Not Resolved]
  - Diarrhoea [Not Recovered/Not Resolved]
  - Swelling [Not Recovered/Not Resolved]
